FAERS Safety Report 22964274 (Version 2)
Quarter: 2023Q4

REPORT INFORMATION
  Report Type: Report from Study
  Country: PL (occurrence: PL)
  Receive Date: 20230921
  Receipt Date: 20231004
  Transmission Date: 20240109
  Serious: Yes (Hospitalization)
  Sender: FDA-Public Use
  Company Number: PL-JNJFOC-20230934385

PATIENT
  Sex: Female
  Weight: 76 kg

DRUGS (14)
  1. MACITENTAN [Suspect]
     Active Substance: MACITENTAN
     Indication: Mixed connective tissue disease
     Dosage: TOTAL DAILY DOSE: 10 MG
     Route: 048
     Dates: start: 20230224
  2. SILDENAFIL [Concomitant]
     Active Substance: SILDENAFIL
     Dosage: TOTAL DAILY DOSE: 60
     Route: 048
     Dates: start: 20190904
  3. FOLIC ACID [Concomitant]
     Active Substance: FOLIC ACID
     Route: 048
     Dates: start: 202306
  4. METHOTREXATE [Concomitant]
     Active Substance: METHOTREXATE
     Indication: Immunosuppression
     Route: 048
     Dates: start: 202306
  5. METHOTREXATE [Concomitant]
     Active Substance: METHOTREXATE
     Indication: Neoplasm prophylaxis
  6. POTASSIUM CHLORIDE [Concomitant]
     Active Substance: POTASSIUM CHLORIDE
     Indication: Hypokalaemia
     Route: 048
     Dates: start: 20210818
  7. ESOMEPRAZOLE MAGNESIUM [Concomitant]
     Active Substance: ESOMEPRAZOLE\ESOMEPRAZOLE MAGNESIUM\ESOMEPRAZOLE MAGNESIUM DIHYDRATE
     Indication: Gastrooesophageal reflux disease
     Route: 048
     Dates: start: 20210215
  8. VIT D [VITAMIN D NOS] [Concomitant]
     Route: 048
  9. CALCIUM CARBONATE [Concomitant]
     Active Substance: CALCIUM CARBONATE
     Route: 048
  10. ROSUVASTATIN [Concomitant]
     Active Substance: ROSUVASTATIN
     Indication: Blood cholesterol
  11. METHYLPREDNISOLONE [Concomitant]
     Active Substance: METHYLPREDNISOLONE
     Indication: Dermatitis contact
     Route: 048
  12. METHYLPREDNISOLONE [Concomitant]
     Active Substance: METHYLPREDNISOLONE
     Indication: Skin lesion
  13. HYDROXYCHLOROQUINE DIPHOSPHATE [Concomitant]
     Active Substance: HYDROXYCHLOROQUINE DIPHOSPHATE
     Indication: Systemic lupus erythematosus
     Route: 048
  14. FEROPLEX [Concomitant]
     Indication: Iron deficiency anaemia
     Dates: start: 202302

REACTIONS (1)
  - Upper respiratory tract infection [Recovered/Resolved]

NARRATIVE: CASE EVENT DATE: 20230905
